FAERS Safety Report 24750969 (Version 1)
Quarter: 2024Q4

REPORT INFORMATION
  Report Type: Spontaneous
  Country: DE (occurrence: DE)
  Receive Date: 20241219
  Receipt Date: 20241219
  Transmission Date: 20250115
  Serious: Yes (Other)
  Sender: MERCK KGAA
  Company Number: DE-Merck Healthcare KGaA-2024065379

PATIENT
  Age: 79 Year
  Sex: Male

DRUGS (6)
  1. EUTHYROX [Suspect]
     Active Substance: LEVOTHYROXINE SODIUM
     Indication: Post procedural hypothyroidism
     Dosage: ON AN EMPTY STOMACH VERY EARLY IN THE MORNING
  2. VITAMIN B12 [Concomitant]
     Active Substance: CYANOCOBALAMIN
     Indication: Product used for unknown indication
     Dosage: ON AN EMPTY STOMACH
  3. CANDESARTAN [Concomitant]
     Active Substance: CANDESARTAN
     Indication: Product used for unknown indication
     Dosage: MORNING AND EVENING 1/2 TABLET EACH
  4. AMLODIPINE [Concomitant]
     Active Substance: AMLODIPINE BESYLATE
     Indication: Product used for unknown indication
  5. ALLOPURINOL [Concomitant]
     Active Substance: ALLOPURINOL
     Indication: Product used for unknown indication
  6. METAMIZOLE [Concomitant]
     Active Substance: METAMIZOLE
     Indication: Product used for unknown indication

REACTIONS (9)
  - Diabetes mellitus [Unknown]
  - Hip surgery [Unknown]
  - Neurodermatitis [Unknown]
  - Asthma [Unknown]
  - Chronic sinusitis [Unknown]
  - Blood thyroid stimulating hormone increased [Unknown]
  - Red blood cell macrocytes [Unknown]
  - Fall [Unknown]
  - Blood thyroid stimulating hormone decreased [Unknown]

NARRATIVE: CASE EVENT DATE: 20240901
